FAERS Safety Report 11768632 (Version 4)
Quarter: 2019Q4

REPORT INFORMATION
  Report Type: Spontaneous
  Country: US (occurrence: US)
  Receive Date: 20151123
  Receipt Date: 20191129
  Transmission Date: 20200122
  Serious: Yes (Other)
  Sender: FDA-Public Use
  Company Number: US-PFIZER INC-2015395541

PATIENT
  Age: 70 Year
  Sex: Female
  Weight: 73 kg

DRUGS (4)
  1. LIPITOR [Suspect]
     Active Substance: ATORVASTATIN CALCIUM
     Indication: CARDIOVASCULAR EVENT PROPHYLAXIS
     Dosage: 20 MG, UNK
     Route: 048
     Dates: start: 20080114, end: 201207
  2. LIPITOR [Suspect]
     Active Substance: ATORVASTATIN CALCIUM
     Indication: BLOOD CHOLESTEROL INCREASED
  3. LIPITOR [Suspect]
     Active Substance: ATORVASTATIN CALCIUM
     Indication: LOW DENSITY LIPOPROTEIN INCREASED
     Dosage: 20 MG, 1X/DAY
     Route: 048
     Dates: start: 20080114, end: 20120814
  4. BENICAR [Concomitant]
     Active Substance: OLMESARTAN MEDOXOMIL
     Indication: HYPERTENSION
     Dosage: UNK

REACTIONS (1)
  - Type 2 diabetes mellitus [Not Recovered/Not Resolved]

NARRATIVE: CASE EVENT DATE: 20100614
